FAERS Safety Report 5027748-2 (Version None)
Quarter: 2006Q2

REPORT INFORMATION
  Report Type: 
  Country: None (occurrence: None)
  Receive Date: 20060428
  Receipt Date: 20060306
  Transmission Date: 20061013
  Serious: Yes (Death, Hospitalization)
  Sender: FDA-Public Use
  Company Number: COT_0420_2006

PATIENT
  Age: 74 Year
  Sex: Female
  Weight: 83.4619 kg

DRUGS (16)
  1. VENTAVIS [Suspect]
     Indication: PULMONARY HYPERTENSION
     Dosage: 2.5 MG ONCE IH
     Route: 055
     Dates: start: 20060221, end: 20060221
  2. VENTAVIS [Suspect]
     Indication: PULMONARY HYPERTENSION
     Dosage: 2.5 MCG 6XD IH
     Route: 055
     Dates: start: 20060227, end: 20060301
  3. MORPHINE [Suspect]
     Indication: AGITATION
     Dates: start: 20060304, end: 20060304
  4. IRON [Concomitant]
  5. DIOVAN [Concomitant]
  6. COUMADIN [Concomitant]
  7. TRACLEER [Concomitant]
  8. SILDENAFIL [Concomitant]
  9. NORVASC [Concomitant]
  10. DEMADEX [Concomitant]
  11. POTASSIUM [Concomitant]
  12. CELEBREX [Concomitant]
  13. ATROVENT [Concomitant]
  14. ADVAIR DISKUS 100/50 [Concomitant]
  15. COLACE [Concomitant]
  16. TYLENOL (CAPLET) [Concomitant]

REACTIONS (2)
  - CONDITION AGGRAVATED [None]
  - PULMONARY HYPERTENSION [None]
